FAERS Safety Report 8000399-3 (Version None)
Quarter: 2011Q4

REPORT INFORMATION
  Report Type: 
  Country: None (occurrence: None)
  Receive Date: 20111222
  Receipt Date: 20090827
  Transmission Date: 20120403
  Serious: No
  Sender: FDA-Public Use
  Company Number: US-BRISTOL-MYERS SQUIBB COMPANY-14757439

PATIENT
  Age: 82 Year
  Sex: Female
  Weight: 74 kg

DRUGS (11)
  1. PRAVASTATIN SODIUM [Suspect]
  2. HYDROCHLOROTHIAZIDE [Concomitant]
     Indication: FLUID RETENTION
  3. SIMVASTATIN [Concomitant]
     Indication: BLOOD CHOLESTEROL INCREASED
  4. ALPRAZOLAM [Concomitant]
     Indication: HYPERTENSION
  5. TRILIPIX [Concomitant]
     Indication: BLOOD CHOLESTEROL INCREASED
     Route: 065
     Dates: start: 20090726
  6. ALLOPURINOL [Concomitant]
     Indication: GOUT
  7. GLIMEPIRIDE [Concomitant]
     Indication: DIABETES MELLITUS
  8. ZEGERID [Concomitant]
     Indication: FLATULENCE
  9. HYDRALAZINE HCL [Concomitant]
     Indication: HYPERTENSION
  10. BYSTOLIC [Concomitant]
     Indication: HYPERTENSION
  11. CLOPIDOGREL BISULFATE [Concomitant]
     Indication: CEREBROVASCULAR ACCIDENT

REACTIONS (1)
  - MUSCLE SPASMS [None]
